FAERS Safety Report 14268572 (Version 1)
Quarter: 2017Q4

REPORT INFORMATION
  Report Type: Spontaneous
  Country: US (occurrence: US)
  Receive Date: 20171211
  Receipt Date: 20171211
  Transmission Date: 20180321
  Serious: No
  Sender: FDA-Public Use
  Company Number: US-B.I. PHARMACEUTICALS,INC./RIDGEFIELD-2017-BI-064686

PATIENT
  Sex: Female

DRUGS (1)
  1. SPIRIVA [Suspect]
     Active Substance: TIOTROPIUM BROMIDE MONOHYDRATE
     Indication: PRODUCT USED FOR UNKNOWN INDICATION
     Dosage: ONCE DAILY  STRENGTH: 18 MCG; FORM: CAP  ADMINISTRATION CORRECT? Y  ACTION TAKEN: DOSE NOT CHANGED
     Route: 055

REACTIONS (3)
  - Increased bronchial secretion [Unknown]
  - Drug ineffective [Unknown]
  - Wheezing [Unknown]
